FAERS Safety Report 22154964 (Version 2)
Quarter: 2024Q2

REPORT INFORMATION
  Report Type: Report from Study
  Country: US (occurrence: US)
  Receive Date: 20230330
  Receipt Date: 20240425
  Transmission Date: 20240716
  Serious: Yes (Hospitalization, Other)
  Sender: FDA-Public Use
  Company Number: US-ABBVIE-4706625

PATIENT
  Age: 55 Year
  Sex: Female

DRUGS (2)
  1. HUMIRA [Suspect]
     Active Substance: ADALIMUMAB
     Indication: Rheumatoid arthritis
     Dosage: FORM STRENGTH: 40 MILLIGRAM  CITRATE FREE
     Route: 058
     Dates: start: 20211103
  2. HUMIRA [Suspect]
     Active Substance: ADALIMUMAB
     Dosage: FORM STRENGTH: 40 MILLIGRAM  CITRATE FREE
     Route: 058

REACTIONS (16)
  - Cystitis [Recovering/Resolving]
  - Urinary tract infection [Unknown]
  - Pain [Unknown]
  - Blood pressure decreased [Unknown]
  - Adverse drug reaction [Not Recovered/Not Resolved]
  - Weight decreased [Unknown]
  - Stress fracture [Unknown]
  - Kidney infection [Recovering/Resolving]
  - Denture wearer [Recovered/Resolved]
  - Renal disorder [Unknown]
  - Sleeve gastrectomy [Unknown]
  - Unevaluable event [Unknown]
  - Arthritis [Unknown]
  - Exostosis [Recovering/Resolving]
  - Skin discolouration [Unknown]
  - Osteoarthritis [Recovering/Resolving]

NARRATIVE: CASE EVENT DATE: 20220501
